FAERS Safety Report 21510566 (Version 1)
Quarter: 2022Q4

REPORT INFORMATION
  Report Type: Spontaneous
  Country: US (occurrence: US)
  Receive Date: 20221026
  Receipt Date: 20221026
  Transmission Date: 20230113
  Serious: Yes (Other)
  Sender: FDA-Public Use
  Company Number: US-INCYTE CORPORATION-2022IN010190

PATIENT

DRUGS (1)
  1. JAKAFI [Suspect]
     Active Substance: RUXOLITINIB
     Indication: Acute lymphocytic leukaemia
     Dosage: 10 MILLIGRAM, BID (1 TABLET DAILY IN THE MORNING AND 1 TABLET DAILY BEFORE BEDTIME)
     Route: 048
     Dates: start: 2021

REACTIONS (5)
  - Transplant rejection [Unknown]
  - Onychomadesis [Unknown]
  - Stomatitis [Unknown]
  - Dry eye [Unknown]
  - Off label use [Unknown]

NARRATIVE: CASE EVENT DATE: 20210101
